FAERS Safety Report 7821511-2 (Version None)
Quarter: 2011Q4

REPORT INFORMATION
  Report Type: 
  Country: None (occurrence: None)
  Receive Date: 20111018
  Receipt Date: 20111012
  Transmission Date: 20120403
  Serious: Yes (Death, Other)
  Sender: FDA-Public Use
  Company Number: PHHY2011JP91037

PATIENT

DRUGS (2)
  1. CYCLOSPORINE [Suspect]
     Indication: STEM CELL TRANSPLANT
     Dosage: UNK UKN, UNK
  2. PREDNISOLONE [Suspect]
     Dosage: UNK UKN, UNK

REACTIONS (4)
  - INFECTION [None]
  - HAEMATURIA [None]
  - VIRAL HAEMORRHAGIC CYSTITIS [None]
  - BK VIRUS INFECTION [None]
